FAERS Safety Report 24005257 (Version 1)
Quarter: 2024Q2

REPORT INFORMATION
  Report Type: Spontaneous
  Country: US (occurrence: US)
  Receive Date: 20240624
  Receipt Date: 20240624
  Transmission Date: 20240716
  Serious: No
  Sender: FDA-Public Use
  Company Number: US-LEX-000316

PATIENT
  Sex: Female

DRUGS (1)
  1. INPEFA [Suspect]
     Active Substance: SOTAGLIFLOZIN
     Indication: Product used for unknown indication
     Dosage: IN THE MORNING
     Route: 048

REACTIONS (2)
  - Drug interaction [Recovered/Resolved]
  - Contraindicated product prescribed [Unknown]
